FAERS Safety Report 9556195 (Version 1)
Quarter: 2013Q3

REPORT INFORMATION
  Report Type: Spontaneous
  Country: GB (occurrence: GB)
  Receive Date: 20130926
  Receipt Date: 20130926
  Transmission Date: 20140515
  Serious: Yes (Hospitalization)
  Sender: FDA-Public Use
  Company Number: GB-SUN PHARMACEUTICAL INDUSTRIES LTD-2013SUN04763

PATIENT
  Sex: Male

DRUGS (3)
  1. GEMCITABINE [Suspect]
     Indication: HODGKIN^S DISEASE
     Dosage: 1 G/M2
     Route: 065
  2. SODIUM VALPROATE [Concomitant]
     Indication: EPILEPSY
  3. LAMOTRIGINE [Concomitant]
     Indication: EPILEPSY

REACTIONS (3)
  - Hepatic encephalopathy [Recovered/Resolved]
  - Acute hepatic failure [Recovering/Resolving]
  - Jaundice [Recovering/Resolving]
